FAERS Safety Report 5873585-6 (Version None)
Quarter: 2008Q3

REPORT INFORMATION
  Report Type: 
  Country: None (occurrence: None)
  Receive Date: 20080908
  Receipt Date: 20080826
  Transmission Date: 20090109
  Serious: Yes (Death, Hospitalization)
  Sender: FDA-Public Use
  Company Number: US-BAYER-US-2006-008030

PATIENT
  Age: 87 Year
  Sex: Male
  Weight: 54 kg

DRUGS (89)
  1. CAMPATH [Suspect]
     Indication: CHRONIC LYMPHOCYTIC LEUKAEMIA
     Route: 058
     Dates: start: 20060220, end: 20060224
  2. CAMPATH [Suspect]
     Route: 058
     Dates: start: 20060320, end: 20060324
  3. FLUDARA [Suspect]
     Indication: CHRONIC LYMPHOCYTIC LEUKAEMIA
     Route: 042
     Dates: start: 20060220, end: 20060224
  4. FLUDARA [Suspect]
     Route: 042
     Dates: start: 20060320, end: 20060324
  5. NEUPOGEN [Concomitant]
     Indication: FEBRILE NEUTROPENIA
     Dosage: UNIT DOSE: 480 ?G
     Route: 058
     Dates: start: 20060328, end: 20060412
  6. ARANESP [Concomitant]
     Indication: ANAEMIA
     Dosage: UNIT DOSE: 200 MG
     Route: 058
     Dates: start: 20060303, end: 20060303
  7. CEFEPIME [Concomitant]
     Indication: FEBRILE NEUTROPENIA
     Dosage: UNIT DOSE: 2 G
     Route: 042
     Dates: start: 20060327, end: 20060404
  8. CEFEPIME [Concomitant]
     Dosage: UNIT DOSE: 2 G
     Route: 042
     Dates: start: 20060410, end: 20060413
  9. VANCOMYCIN HYDROCHLORIDE [Concomitant]
     Indication: FEBRILE NEUTROPENIA
     Dosage: UNIT DOSE: 1 G
     Route: 042
     Dates: start: 20060327, end: 20060327
  10. VANCOMYCIN HYDROCHLORIDE [Concomitant]
     Dosage: UNIT DOSE: 1.5 MG
     Route: 042
     Dates: start: 20060327, end: 20060331
  11. VANCOMYCIN HYDROCHLORIDE [Concomitant]
     Dosage: UNIT DOSE: 1 G
     Route: 042
     Dates: start: 20060410, end: 20060410
  12. VANCOMYCIN HYDROCHLORIDE [Concomitant]
     Dosage: UNIT DOSE: 1.5 MG
     Route: 042
     Dates: start: 20060403, end: 20060403
  13. VANCOMYCIN HYDROCHLORIDE [Concomitant]
     Dosage: UNIT DOSE: 750 MG
     Route: 042
     Dates: start: 20060411, end: 20060411
  14. MORPHINE [Concomitant]
     Indication: PAIN
     Dosage: UNIT DOSE: 1 MG
     Route: 042
     Dates: start: 20060413, end: 20060413
  15. MORPHINE [Concomitant]
     Dosage: UNIT DOSE: 100 MG
     Route: 042
     Dates: start: 20060413, end: 20060414
  16. ACYCLOVIR [Concomitant]
     Indication: ANTIVIRAL PROPHYLAXIS
     Dosage: UNIT DOSE: 400 MG
     Route: 042
     Dates: start: 20060328, end: 20060406
  17. ACYCLOVIR [Concomitant]
     Dosage: UNIT DOSE: 400 MG
     Route: 048
     Dates: start: 20060410, end: 20060412
  18. ACYCLOVIR [Concomitant]
     Dosage: UNIT DOSE: 400 MG
     Route: 048
     Dates: start: 20060407, end: 20060409
  19. FLAGYL [Concomitant]
     Indication: DIARRHOEA
     Dosage: UNIT DOSE: 500 MG
     Route: 042
     Dates: start: 20060412, end: 20060413
  20. FLAGYL [Concomitant]
     Dosage: UNIT DOSE: 500 MG
     Route: 048
     Dates: start: 20060411, end: 20060411
  21. FLAGYL [Concomitant]
     Dosage: UNIT DOSE: 500 MG
     Route: 042
     Dates: start: 20060409, end: 20060410
  22. DIFLUCAN [Concomitant]
     Indication: FEBRILE NEUTROPENIA
     Dosage: UNIT DOSE: 400 MG
     Route: 042
     Dates: start: 20060328, end: 20060329
  23. DIFLUCAN [Concomitant]
     Dosage: UNIT DOSE: 400 MG
     Route: 048
     Dates: start: 20060408, end: 20060412
  24. DIFLUCAN [Concomitant]
     Dosage: UNIT DOSE: 400 MG
     Route: 048
     Dates: start: 20060327, end: 20060327
  25. BACTRIM DS [Concomitant]
  26. CASPOFUNGIN [Concomitant]
     Indication: FUNGAL INFECTION
     Dosage: UNIT DOSE: 50 MG
     Route: 042
     Dates: start: 20060330, end: 20060406
  27. CASPOFUNGIN [Concomitant]
     Dosage: UNIT DOSE: 70 MG
     Route: 042
     Dates: start: 20060329, end: 20060329
  28. PLATELETS [Concomitant]
     Indication: THROMBOCYTOPENIA
     Dosage: UNIT DOSE: 1 IU
     Route: 012
     Dates: start: 20060401, end: 20060401
  29. PLATELETS [Concomitant]
     Dosage: UNIT DOSE: 1 IU
     Route: 042
     Dates: start: 20060412, end: 20060412
  30. PLATELETS [Concomitant]
     Dosage: UNIT DOSE: 1 IU
     Route: 042
     Dates: start: 20060330, end: 20060330
  31. PLATELETS [Concomitant]
     Dosage: UNIT DOSE: 1 IU
     Route: 042
     Dates: start: 20060331, end: 20060331
  32. PLATELETS [Concomitant]
     Dosage: UNIT DOSE: 1 IU
     Route: 042
     Dates: start: 20060402, end: 20060402
  33. PLATELETS [Concomitant]
     Dosage: UNIT DOSE: 1 IU
     Route: 042
     Dates: start: 20060410, end: 20060410
  34. PLATELETS [Concomitant]
     Dosage: UNIT DOSE: 2 IU
     Route: 042
     Dates: start: 20060411, end: 20060411
  35. PLATELETS [Concomitant]
     Dosage: UNIT DOSE: 1 IU
     Route: 042
     Dates: start: 20060413, end: 20060413
  36. RED BLOOD CELLS [Concomitant]
     Indication: ANAEMIA
     Dosage: UNIT DOSE: 2 IU
     Route: 042
     Dates: start: 20060405, end: 20060405
  37. TYLENOL (CAPLET) [Concomitant]
     Indication: PYREXIA
     Route: 048
     Dates: start: 20060324, end: 20060324
  38. TYLENOL (CAPLET) [Concomitant]
     Dosage: UNIT DOSE: 650 MG
     Route: 048
     Dates: start: 20060329, end: 20060329
  39. TYLENOL (CAPLET) [Concomitant]
     Dosage: UNIT DOSE: 650 MG
     Route: 054
     Dates: start: 20060414, end: 20060414
  40. TYLENOL (CAPLET) [Concomitant]
     Dosage: UNIT DOSE: 650 MG
     Route: 048
     Dates: start: 20060406, end: 20060406
  41. ACYCLOVIR [Concomitant]
     Dosage: UNIT DOSE: 400 MG
     Route: 048
     Dates: end: 20060309
  42. ACYCLOVIR [Concomitant]
     Dosage: UNIT DOSE: 400 MG
     Route: 048
     Dates: start: 20060310, end: 20060327
  43. BACTRIM DS [Concomitant]
     Indication: INFECTION PROPHYLAXIS
     Route: 048
     Dates: start: 20031213, end: 20060412
  44. ETHMOZINE [Concomitant]
     Indication: CORONARY ARTERY DISEASE
     Dosage: UNIT DOSE: 200 MG
     Route: 048
     Dates: start: 20011113, end: 20060409
  45. ETHMOZINE [Concomitant]
     Dosage: UNIT DOSE: 250 MG
     Route: 048
     Dates: start: 20060410, end: 20060412
  46. DIGOXIN [Concomitant]
     Indication: CORONARY ARTERY DISEASE
     Dosage: UNIT DOSE: 0.125 MG
     Route: 042
     Dates: start: 20060328, end: 20060406
  47. DIGOXIN [Concomitant]
     Dosage: UNIT DOSE: 0.125 MG
     Route: 048
     Dates: start: 20060408, end: 20060410
  48. DIGOXIN [Concomitant]
     Dosage: UNIT DOSE: 0.25 MG
     Route: 048
     Dates: start: 20011210, end: 20060327
  49. LOPRESSOR [Concomitant]
     Indication: CORONARY ARTERY DISEASE
     Dosage: UNIT DOSE: 25 MG
     Route: 048
     Dates: start: 20030211, end: 20060412
  50. ASPIRIN [Concomitant]
     Indication: CORONARY ARTERY DISEASE
     Dosage: UNIT DOSE: 81 MG
     Route: 048
     Dates: start: 19991011, end: 20060406
  51. TUMS [Concomitant]
     Indication: DYSPEPSIA
     Route: 048
     Dates: start: 20040120, end: 20060409
  52. TYLENOL (CAPLET) [Concomitant]
     Indication: ARTHRITIS
     Route: 048
     Dates: start: 19971201, end: 20060405
  53. MILK OF MAGNESIA [Concomitant]
     Indication: CONSTIPATION
     Dosage: UNIT DOSE: 15 ML
     Route: 048
     Dates: start: 20000327, end: 20060101
  54. ASCORBIC ACID [Concomitant]
     Indication: VITAMIN SUPPLEMENTATION
     Dosage: UNIT DOSE: 500 MG
     Route: 048
     Dates: start: 20000327, end: 20060101
  55. TRAVATAN [Concomitant]
     Indication: GLAUCOMA
     Dosage: UNIT DOSE: 1 GTT
     Route: 047
     Dates: start: 20050610, end: 20060411
  56. COSOPT [Concomitant]
     Indication: GLAUCOMA
     Dosage: UNIT DOSE: 1 GTT
     Route: 047
     Dates: start: 20060410, end: 20060413
  57. COSOPT [Concomitant]
     Dosage: UNIT DOSE: 1 GTT
     Route: 047
     Dates: start: 20050610, end: 20060409
  58. CIPROFLOXACIN [Concomitant]
     Indication: INFECTION PROPHYLAXIS
     Dosage: UNIT DOSE: 500 MG
     Route: 048
     Dates: start: 20060224, end: 20060303
  59. NEULASTA [Concomitant]
     Indication: NEUTROPENIA
     Dosage: UNIT DOSE: 6 MG
     Route: 058
     Dates: start: 20060224, end: 20060224
  60. ARANESP [Concomitant]
     Dosage: UNIT DOSE: 200 MG
     Route: 058
     Dates: start: 20060320, end: 20060320
  61. RED BLOOD CELLS [Concomitant]
     Route: 042
     Dates: start: 20060324, end: 20060324
  62. RED BLOOD CELLS [Concomitant]
     Dosage: UNIT DOSE: 2 IU
     Route: 042
     Dates: start: 20060304, end: 20060304
  63. MULTIVITAMIN ^LAPPE^ [Concomitant]
     Indication: VITAMIN SUPPLEMENTATION
     Route: 048
     Dates: start: 19990322, end: 20060412
  64. METRONIDAZOLE [Concomitant]
     Indication: DIARRHOEA
     Dosage: UNIT DOSE: 500 MG
     Route: 048
     Dates: start: 20060320, end: 20060320
  65. TYLENOL (CAPLET) [Concomitant]
     Indication: PREMEDICATION
     Dosage: UNIT DOSE: 650 MG
     Route: 048
     Dates: start: 20060320, end: 20060324
  66. TYLENOL (CAPLET) [Concomitant]
     Dosage: UNIT DOSE: 650 MG
     Route: 048
     Dates: start: 20060401, end: 20060401
  67. TYLENOL (CAPLET) [Concomitant]
     Dosage: UNIT DOSE: 650 MG
     Route: 048
     Dates: start: 20060330, end: 20060330
  68. TYLENOL (CAPLET) [Concomitant]
     Dosage: UNIT DOSE: 650 MG
     Route: 048
     Dates: start: 20060220, end: 20060224
  69. TYLENOL (CAPLET) [Concomitant]
     Dosage: UNIT DOSE: 650 MG
     Route: 048
     Dates: start: 20060405, end: 20060405
  70. BENADRYL ^PFIZER WARNER-LAMBERT^ [Concomitant]
     Indication: PREMEDICATION
     Dosage: UNIT DOSE: 25 MG
     Route: 048
     Dates: start: 20060320, end: 20060324
  71. BENADRYL ^PFIZER WARNER-LAMBERT^ [Concomitant]
     Dosage: UNIT DOSE: 25 MG
     Route: 048
     Dates: start: 20060405, end: 20060405
  72. BENADRYL ^PFIZER WARNER-LAMBERT^ [Concomitant]
     Dosage: UNIT DOSE: 25 MG
     Route: 048
     Dates: start: 20060331, end: 20060331
  73. BENADRYL ^PFIZER WARNER-LAMBERT^ [Concomitant]
     Dosage: UNIT DOSE: 25 MG
     Route: 048
     Dates: start: 20060220, end: 20060224
  74. LIDOCAINE [Concomitant]
     Indication: LOCAL ANAESTHESIA
     Route: 042
     Dates: start: 20060315, end: 20060315
  75. KEFZOL [Concomitant]
     Indication: PREMEDICATION
     Dosage: UNIT DOSE: 1 G
     Route: 042
     Dates: start: 20060315, end: 20060315
  76. MIDAZOLAM HCL [Concomitant]
     Indication: PREMEDICATION
     Dosage: UNIT DOSE: 1.5 MG
     Route: 042
     Dates: start: 20060315, end: 20060315
  77. FENTANYL-25 [Concomitant]
     Indication: PREMEDICATION
     Dosage: UNIT DOSE: 25 ?G
     Route: 042
     Dates: start: 20060315, end: 20060315
  78. PROPOFOL [Concomitant]
     Indication: PREMEDICATION
     Dosage: UNIT DOSE: 50 MG
     Route: 042
     Dates: start: 20060315, end: 20060315
  79. ZOFRAN [Concomitant]
     Indication: NAUSEA
     Dosage: UNIT DOSE: 4 MG
     Route: 042
     Dates: start: 20060327, end: 20060328
  80. LOVENOX [Concomitant]
     Indication: THROMBOSIS PROPHYLAXIS
     Dosage: UNIT DOSE: 40 MG
     Route: 058
     Dates: start: 20060327, end: 20060329
  81. PERIOGARD [Concomitant]
     Indication: MUCOSAL INFLAMMATION
     Dosage: UNIT DOSE: 10 ML
     Route: 048
     Dates: start: 20060328, end: 20060412
  82. GELCLAIR [Concomitant]
     Indication: MUCOSAL INFLAMMATION
     Dosage: UNIT DOSE: 15 ML
     Route: 048
     Dates: start: 20060331, end: 20060412
  83. POTASSIUM CHLORIDE [Concomitant]
     Indication: HYPOKALAEMIA
     Dosage: UNIT DOSE: 10 MEQ
     Route: 042
     Dates: start: 20060410, end: 20060411
  84. POTASSIUM CHLORIDE [Concomitant]
     Dosage: UNIT DOSE: 40 MEQ
     Route: 042
     Dates: start: 20060402, end: 20060404
  85. POTASSIUM CHLORIDE [Concomitant]
     Dosage: UNIT DOSE: 40 MEQ
     Route: 042
     Dates: start: 20060331, end: 20060331
  86. ACTIVASE [Concomitant]
     Indication: CATHETER PLACEMENT
     Dosage: UNIT DOSE: 2 MG
     Route: 042
     Dates: start: 20060405, end: 20060405
  87. NEXIUM [Concomitant]
     Indication: PROPHYLAXIS
     Dosage: UNIT DOSE: 40 MG
     Route: 048
     Dates: start: 20060410, end: 20060412
  88. LOVENOX [Concomitant]
     Dosage: UNIT DOSE: 40 MG
     Route: 058
     Dates: start: 20060410, end: 20060410
  89. COMPAZINE [Concomitant]
     Indication: NAUSEA
     Dosage: UNIT DOSE: 10 MG
     Route: 048
     Dates: start: 20060323, end: 20060323

REACTIONS (3)
  - FEBRILE NEUTROPENIA [None]
  - PNEUMONIA ASPIRATION [None]
  - SPLENIC ABSCESS [None]
